FAERS Safety Report 7451969-2 (Version None)
Quarter: 2011Q2

REPORT INFORMATION
  Report Type: 
  Country: None (occurrence: None)
  Receive Date: 20110502
  Receipt Date: 20110426
  Transmission Date: 20111010
  Serious: Yes (Hospitalization)
  Sender: FDA-Public Use
  Company Number: PHHY2011GB34803

PATIENT
  Age: 67 Year
  Sex: Female

DRUGS (3)
  1. GLUCOCORTICOIDS [Concomitant]
     Indication: PEMPHIGUS
     Dosage: UNK UKN, UNK
  2. CALCIUM W/VITAMIN D NOS [Concomitant]
     Indication: OSTEOPOROSIS
     Dosage: UNK UKN, UNK
  3. ALENDRONATE SODIUM [Suspect]
     Indication: OSTEOPOROSIS
     Dosage: UNK UKN, UNK

REACTIONS (5)
  - ARTHRALGIA [None]
  - HYPERTROPHY [None]
  - WEIGHT BEARING DIFFICULTY [None]
  - FEMUR FRACTURE [None]
  - OSTEOPENIA [None]
